FAERS Safety Report 9412100 (Version 1)
Quarter: 2013Q2

REPORT INFORMATION
  Report Type: Spontaneous
  Country: US (occurrence: US)
  Receive Date: 20130422
  Receipt Date: 20130422
  Transmission Date: 20140414
  Serious: Yes (Other)
  Sender: FDA-Public Use
  Company Number: 2013SA035571

PATIENT
  Age: 68 Year
  Sex: Male
  Weight: 106 kg

DRUGS (12)
  1. LANTUS SOLOSTAR [Suspect]
     Indication: TYPE 2 DIABETES MELLITUS
     Route: 058
     Dates: start: 201107
  2. SOLOSTAR [Suspect]
     Dates: start: 201107
  3. ACTOS [Suspect]
     Route: 048
  4. GLUCOPHAGE [Concomitant]
  5. ONGLYZA [Concomitant]
  6. SIMVASTATIN [Concomitant]
  7. AMLODIPINE BESILATE [Concomitant]
  8. LISINOPRIL [Concomitant]
  9. METOPROLOL TARTRATE [Concomitant]
  10. FISH OIL [Concomitant]
  11. LUMIGAN [Concomitant]
  12. ASPIRIN [Concomitant]

REACTIONS (2)
  - Anosmia [None]
  - Ageusia [None]
